FAERS Safety Report 6073171-1 (Version None)
Quarter: 2009Q1

REPORT INFORMATION
  Report Type: 
  Country: None (occurrence: None)
  Receive Date: 20090211
  Receipt Date: 20090108
  Transmission Date: 20090719
  Serious: No
  Sender: FDA-Public Use
  Company Number: US-BAYER-200910147NA

PATIENT
  Age: 66 Year
  Sex: Female
  Weight: 117 kg

DRUGS (16)
  1. AVELOX [Suspect]
     Indication: RESPIRATORY DISORDER
     Dosage: TOTAL DAILY DOSE: 400 MG  UNIT DOSE: 400 MG
     Dates: start: 20090104
  2. LASIX [Concomitant]
     Indication: OEDEMA PERIPHERAL
  3. POTASSIUM CHLORIDE [Concomitant]
  4. PULMICORT-100 [Concomitant]
     Dates: start: 20090104
  5. ALBUTEROL [Concomitant]
     Dates: start: 20090104
  6. FLU [Concomitant]
     Dates: start: 20081028
  7. LIDODERM [Concomitant]
  8. SYNVISC [Concomitant]
  9. HYDROCHLOROTHIAZIDE [Concomitant]
     Dosage: TOTAL DAILY DOSE: 25 MG
     Route: 048
  10. PREVACID [Concomitant]
  11. ZANTAC [Concomitant]
  12. NASACORT [Concomitant]
  13. COMBIVENT [Concomitant]
     Route: 055
  14. ALLEGRA [Concomitant]
  15. VALIUM [Concomitant]
  16. AZMACORT [Concomitant]
     Route: 055

REACTIONS (2)
  - NO ADVERSE EVENT [None]
  - OEDEMA PERIPHERAL [None]
